FAERS Safety Report 8611943-7 (Version None)
Quarter: 2012Q3

REPORT INFORMATION
  Report Type: 
  Country: None (occurrence: None)
  Receive Date: 20120822
  Receipt Date: 20120813
  Transmission Date: 20120928
  Serious: Yes (Hospitalization, Other)
  Sender: FDA-Public Use
  Company Number: FR-PFIZER INC-2012005385

PATIENT
  Age: 35 Year
  Sex: Female

DRUGS (10)
  1. TERCIAN [Suspect]
     Dosage: 30 DROPS
     Route: 048
     Dates: start: 20111206, end: 20111206
  2. TERCIAN [Suspect]
     Dosage: 15 DROPS
     Route: 048
     Dates: start: 20111207, end: 20111212
  3. ZYPREXA [Suspect]
     Indication: MAJOR DEPRESSION
     Dosage: 10 MG DAILY
     Route: 048
     Dates: start: 20111201, end: 20111205
  4. VENLAFAXINE HCL [Suspect]
     Dosage: 50 MG, 1X/DAY
     Route: 048
     Dates: start: 20111207, end: 20111209
  5. TERCIAN [Suspect]
     Indication: ANXIOLYTIC THERAPY
     Dosage: 100 DROPS (=100 MG) DAILY
     Route: 048
     Dates: start: 20111201, end: 20111203
  6. EFFEXOR XR [Suspect]
     Dosage: 75 MG, 2X/DAY
     Route: 048
     Dates: start: 20111210, end: 20111223
  7. TERCIAN [Suspect]
     Dosage: 95 DROPS DAILY
     Route: 048
     Dates: start: 20111204, end: 20111205
  8. HYDROXYZINE HCL [Suspect]
     Dosage: 300 MG, UNTIL 300 MG DAILY
     Route: 048
     Dates: start: 20111221
  9. ZYPREXA [Suspect]
     Dosage: 10 MG, 2X/DAY
     Route: 048
     Dates: start: 20111206, end: 20111223
  10. TERCIAN [Suspect]
     Dosage: 5 DROPS
     Route: 048
     Dates: start: 20111213

REACTIONS (2)
  - CYTOLYTIC HEPATITIS [None]
  - PRURITUS [None]
